FAERS Safety Report 11809878 (Version 1)
Quarter: 2015Q4

REPORT INFORMATION
  Report Type: Spontaneous
  Country: US (occurrence: None)
  Receive Date: 20151207
  Receipt Date: 20151207
  Transmission Date: 20160305
  Serious: Yes (Other)
  Sender: FDA-Public Use
  Company Number: None

PATIENT
  Age: 33 Year
  Sex: Male
  Weight: 163.3 kg

DRUGS (4)
  1. METOPROPOL [Concomitant]
  2. LITHIUM. [Concomitant]
     Active Substance: LITHIUM
  3. LATUDA [Concomitant]
     Active Substance: LURASIDONE HYDROCHLORIDE
  4. LATUDA [Suspect]
     Active Substance: LURASIDONE HYDROCHLORIDE
     Indication: BIPOLAR DISORDER
     Dosage: TAKEN BY MOUTH

REACTIONS (4)
  - Vomiting [None]
  - Restlessness [None]
  - Formication [None]
  - Feeling abnormal [None]

NARRATIVE: CASE EVENT DATE: 20151205
